FAERS Safety Report 22309274 (Version 1)
Quarter: 2023Q2

REPORT INFORMATION
  Report Type: Spontaneous
  Country: FR (occurrence: FR)
  Receive Date: 20230511
  Receipt Date: 20230511
  Transmission Date: 20230722
  Serious: Yes (Other)
  Sender: FDA-Public Use
  Company Number: None

PATIENT
  Age: 35 Year
  Sex: Female

DRUGS (9)
  1. ETHINYL ESTRADIOL\GESTODENE [Suspect]
     Active Substance: ETHINYL ESTRADIOL\GESTODENE
     Indication: Hormonal contraception
     Dosage: 1 DF, DAILY
     Route: 048
     Dates: start: 2005, end: 200610
  2. ETHINYL ESTRADIOL\LEVONORGESTREL [Suspect]
     Active Substance: ETHINYL ESTRADIOL\LEVONORGESTREL
     Indication: Hormonal contraception
     Dosage: 1 DF, DAILY
     Route: 048
     Dates: start: 200610, end: 201102
  3. KYLEENA [Suspect]
     Active Substance: LEVONORGESTREL
     Indication: Hormonal contraception
     Dosage: 1 DF
     Route: 015
     Dates: start: 20210315, end: 20230426
  4. DESOGESTREL [Suspect]
     Active Substance: DESOGESTREL
     Indication: Hormonal contraception
     Dosage: 1 DF, DAILY
     Route: 048
     Dates: start: 201607, end: 201612
  5. ETHINYL ESTRADIOL\LEVONORGESTREL [Suspect]
     Active Substance: ETHINYL ESTRADIOL\LEVONORGESTREL
     Indication: Hormonal contraception
     Dosage: 1 DF, DAILY
     Route: 048
     Dates: start: 201102, end: 201206
  6. ETHINYL ESTRADIOL\LEVONORGESTREL [Suspect]
     Active Substance: ETHINYL ESTRADIOL\LEVONORGESTREL
     Dosage: 1 DF, DAILY
     Route: 048
     Dates: start: 201312, end: 201507
  7. ETHINYL ESTRADIOL\LEVONORGESTREL [Suspect]
     Active Substance: ETHINYL ESTRADIOL\LEVONORGESTREL
     Dosage: 1 DF, DAILY
     Route: 048
     Dates: start: 201701, end: 201905
  8. DESOGESTREL [Suspect]
     Active Substance: DESOGESTREL
     Indication: Hormonal contraception
     Dosage: 1 DF, DAILY
     Route: 048
     Dates: start: 201306, end: 201312
  9. DESOGESTREL [Suspect]
     Active Substance: DESOGESTREL
     Dosage: 1 DF, DAILY
     Route: 048
     Dates: start: 202009, end: 202101

REACTIONS (1)
  - Meningioma [Not Recovered/Not Resolved]

NARRATIVE: CASE EVENT DATE: 20221101
